FAERS Safety Report 15799914 (Version 8)
Quarter: 2021Q1

REPORT INFORMATION
  Report Type: Spontaneous
  Country: US (occurrence: US)
  Receive Date: 20190108
  Receipt Date: 20210325
  Transmission Date: 20210419
  Serious: Yes (Other)
  Sender: FDA-Public Use
  Company Number: US-PFIZER INC-2019010126

PATIENT
  Age: 73 Year
  Sex: Female

DRUGS (2)
  1. XELJANZ XR [Suspect]
     Active Substance: TOFACITINIB CITRATE
     Dosage: 11 MG
  2. XELJANZ XR [Suspect]
     Active Substance: TOFACITINIB CITRATE
     Dosage: 11 MG, ALTERNATE DAY (EVERY OTHER DAY)

REACTIONS (10)
  - Fall [Unknown]
  - Back injury [Unknown]
  - Dysstasia [Unknown]
  - Gait inability [Unknown]
  - Lumbar vertebral fracture [Unknown]
  - Nerve compression [Unknown]
  - Fatigue [Unknown]
  - Spinal disorder [Unknown]
  - Asthenia [Unknown]
  - Intentional product misuse [Unknown]

NARRATIVE: CASE EVENT DATE: 201808
